FAERS Safety Report 12767752 (Version 1)
Quarter: 2016Q3

REPORT INFORMATION
  Report Type: Report from Study
  Country: US (occurrence: US)
  Receive Date: 20160921
  Receipt Date: 20160921
  Transmission Date: 20161109
  Serious: Yes (Hospitalization)
  Sender: FDA-Public Use
  Company Number: US-JNJFOC-20160919580

PATIENT
  Age: 82 Year
  Sex: Female

DRUGS (9)
  1. ZOLOFT [Concomitant]
     Active Substance: SERTRALINE HYDROCHLORIDE
  2. IMBRUVICA [Suspect]
     Active Substance: IBRUTINIB
     Indication: CHRONIC LYMPHOCYTIC LEUKAEMIA
     Route: 048
     Dates: start: 20150424
  3. DABIGATRAN ETEXILATE MESILATE [Concomitant]
     Active Substance: DABIGATRAN ETEXILATE MESYLATE
  4. AMIODARONE [Concomitant]
     Active Substance: AMIODARONE
  5. ENALAPRIL [Concomitant]
     Active Substance: ENALAPRIL
  6. LASIX [Concomitant]
     Active Substance: FUROSEMIDE
  7. TIKOSYN [Concomitant]
     Active Substance: DOFETILIDE
  8. HCTZ [Concomitant]
     Active Substance: HYDROCHLOROTHIAZIDE
  9. SOTALOL. [Concomitant]
     Active Substance: SOTALOL

REACTIONS (3)
  - Off label use [Unknown]
  - Arrhythmia [Recovered/Resolved]
  - Incorrect dose administered [Unknown]

NARRATIVE: CASE EVENT DATE: 20150424
